FAERS Safety Report 7564785-8 (Version None)
Quarter: 2011Q2

REPORT INFORMATION
  Report Type: 
  Country: None (occurrence: None)
  Receive Date: 20110622
  Receipt Date: 20101116
  Transmission Date: 20111010
  Serious: Yes (Death)
  Sender: FDA-Public Use
  Company Number: US-MYLANLABS-2010S1021223

PATIENT
  Age: 47 Year
  Sex: Female

DRUGS (9)
  1. OMEPRAZOLE [Concomitant]
  2. TRAZODONE HCL [Concomitant]
  3. CLOZAPINE [Suspect]
     Route: 048
  4. CLONAZEPAM [Concomitant]
  5. CLOZAPINE [Suspect]
     Route: 048
  6. CARBAMAZEPINE [Concomitant]
  7. LIPITOR [Concomitant]
  8. WELLBUTRIN [Concomitant]
  9. LISINOPRIL [Concomitant]

REACTIONS (1)
  - DEATH [None]
